FAERS Safety Report 17864673 (Version 1)
Quarter: 2020Q2

REPORT INFORMATION
  Report Type: Spontaneous
  Country: RO (occurrence: RO)
  Receive Date: 20200605
  Receipt Date: 20200605
  Transmission Date: 20200714
  Serious: Yes (Other)
  Sender: FDA-Public Use
  Company Number: RO-SUN PHARMACEUTICAL INDUSTRIES LTD-2020RR-249252

PATIENT
  Age: 67 Year
  Sex: Female

DRUGS (1)
  1. ASCORD 10 MG COMPRIMATE FILMATE [Suspect]
     Active Substance: ATORVASTATIN CALCIUM
     Indication: PRODUCT USED FOR UNKNOWN INDICATION
     Dosage: UNK
     Route: 065

REACTIONS (4)
  - Gait inability [Unknown]
  - Malaise [Unknown]
  - Adverse reaction [Unknown]
  - Bedridden [Unknown]
